FAERS Safety Report 9720954 (Version 1)
Quarter: 2013Q4

REPORT INFORMATION
  Report Type: Spontaneous
  Country: US (occurrence: US)
  Receive Date: 20131129
  Receipt Date: 20131129
  Transmission Date: 20140711
  Serious: Yes (Hospitalization)
  Sender: FDA-Public Use
  Company Number: US-AMGEN-USASP2013083992

PATIENT
  Age: 56 Year
  Sex: Male

DRUGS (14)
  1. ENBREL [Suspect]
     Indication: PSORIASIS
     Dosage: 50 MG ONCE OR TWICE WEEKLY
     Route: 065
  2. DORZOLAMIDE [Concomitant]
     Dosage: UNK
  3. HYDROCHLOROTHIAZIDE [Concomitant]
     Dosage: UNK
  4. ALBUTEROL                          /00139501/ [Concomitant]
     Dosage: UNK
  5. METFORMIN [Concomitant]
     Dosage: UNK
  6. VITAMIN B12                        /00056201/ [Concomitant]
     Dosage: UNK
  7. PRAVASTATIN [Concomitant]
     Dosage: UNK
  8. LORAZEPAM [Concomitant]
     Dosage: UNK
  9. SYMBICORT [Concomitant]
     Dosage: UNK
  10. MULTIVITAMINS, PLAIN [Concomitant]
     Dosage: UNK
  11. IBUPROFEN [Concomitant]
     Dosage: UNK
  12. AMLODIPINE [Concomitant]
     Dosage: UNK
  13. ASPIRIN [Concomitant]
     Dosage: UNK
  14. LATANOPROST [Concomitant]
     Dosage: UNK

REACTIONS (1)
  - Pulmonary embolism [Unknown]
